FAERS Safety Report 6941353-X (Version None)
Quarter: 2010Q3

REPORT INFORMATION
  Report Type: 
  Country: None (occurrence: None)
  Receive Date: 20100825
  Receipt Date: 20100809
  Transmission Date: 20110219
  Serious: Yes (Hospitalization, Other)
  Sender: FDA-Public Use
  Company Number: PHHY2010CN54916

PATIENT
  Age: 29 Year
  Sex: Male

DRUGS (4)
  1. TELBIVUDINE [Suspect]
     Indication: HEPATITIS B
     Dosage: 600 MG, QD
     Route: 048
  2. INTERFERON ALFA-2B [Concomitant]
     Dosage: 3,000,000 IU
     Route: 030
  3. SODIUM BICARBONATE [Concomitant]
     Dosage: 5%
     Route: 042
  4. ANTIBIOTICS [Concomitant]

REACTIONS (29)
  - ABDOMINAL DISTENSION [None]
  - ABDOMINAL PAIN [None]
  - ABDOMINAL PAIN UPPER [None]
  - ABDOMINAL TENDERNESS [None]
  - ALANINE AMINOTRANSFERASE INCREASED [None]
  - ASPARTATE AMINOTRANSFERASE INCREASED [None]
  - BLOOD ALKALINE PHOSPHATASE INCREASED [None]
  - BLOOD AMYLASE INCREASED [None]
  - BLOOD CREATINE PHOSPHOKINASE INCREASED [None]
  - BLOOD CREATINE PHOSPHOKINASE MB INCREASED [None]
  - BLOOD LACTIC ACID INCREASED [None]
  - BLOOD PH DECREASED [None]
  - BLOOD POTASSIUM INCREASED [None]
  - BREATH SOUNDS ABNORMAL [None]
  - CONSTIPATION [None]
  - DIARRHOEA [None]
  - DUODENAL ULCER [None]
  - GASTRITIS EROSIVE [None]
  - HEPATITIS B [None]
  - HEPATITIS B DNA INCREASED [None]
  - HYPERVENTILATION [None]
  - LACTIC ACIDOSIS [None]
  - METABOLIC ACIDOSIS [None]
  - MYALGIA [None]
  - NAUSEA [None]
  - PANCREATITIS ACUTE [None]
  - PYREXIA [None]
  - RESTLESSNESS [None]
  - VOMITING [None]
